FAERS Safety Report 12158587 (Version 1)
Quarter: 2016Q1

REPORT INFORMATION
  Report Type: Spontaneous
  Country: US (occurrence: US)
  Receive Date: 20160308
  Receipt Date: 20160308
  Transmission Date: 20160526
  Serious: No
  Sender: FDA-Public Use
  Company Number: US-JNJFOC-20160117290

PATIENT
  Age: 89 Year
  Sex: Male
  Weight: 70.31 kg

DRUGS (2)
  1. BABY ASPIRIN [Concomitant]
     Active Substance: ASPIRIN
     Indication: PRODUCT USED FOR UNKNOWN INDICATION
     Route: 065
  2. TYLENOL EXTRA STRENGTH [Suspect]
     Active Substance: ACETAMINOPHEN
     Indication: URINARY TRACT INFECTION
     Route: 048
     Dates: start: 20160115

REACTIONS (4)
  - Off label use [Unknown]
  - Product use issue [Unknown]
  - Underdose [Unknown]
  - Therapeutic response unexpected [Unknown]

NARRATIVE: CASE EVENT DATE: 20160115
